FAERS Safety Report 16372227 (Version 2)
Quarter: 2019Q4

REPORT INFORMATION
  Report Type: Spontaneous
  Country: CO (occurrence: CO)
  Receive Date: 20190530
  Receipt Date: 20191212
  Transmission Date: 20200122
  Serious: Yes (Hospitalization)
  Sender: FDA-Public Use
  Company Number: CO-PFIZER INC-2019227339

PATIENT
  Age: 69 Year
  Sex: Female

DRUGS (1)
  1. REAMPLA [Suspect]
     Active Substance: PALBOCICLIB
     Indication: BREAST CANCER METASTATIC
     Dosage: 125 MG, UNK
     Route: 048
     Dates: start: 20190503

REACTIONS (4)
  - Vomiting [Unknown]
  - Bone pain [Not Recovered/Not Resolved]
  - Headache [Unknown]
  - Osteoporosis [Unknown]

NARRATIVE: CASE EVENT DATE: 2019
